FAERS Safety Report 6635843-7 (Version None)
Quarter: 2010Q1

REPORT INFORMATION
  Report Type: 
  Country: None (occurrence: None)
  Receive Date: 20100316
  Receipt Date: 20100303
  Transmission Date: 20100710
  Serious: Yes (Hospitalization)
  Sender: FDA-Public Use
  Company Number: US-JNJFOC-20100301254

PATIENT
  Age: 67 Year
  Sex: Male
  Weight: 85.73 kg

DRUGS (5)
  1. SIMPONI [Suspect]
     Indication: RHEUMATOID ARTHRITIS
     Route: 058
  2. CELEBREX [Concomitant]
     Indication: RHEUMATOID ARTHRITIS
  3. HYDROCODONE [Concomitant]
     Indication: RHEUMATOID ARTHRITIS
  4. PLAVIX [Concomitant]
     Indication: CORONARY ARTERY DISEASE
  5. SIMVASTATIN [Concomitant]
     Indication: CORONARY ARTERY DISEASE

REACTIONS (4)
  - HEPATIC ENZYME INCREASED [None]
  - LIVER ABSCESS [None]
  - PNEUMONIA [None]
  - SEPSIS [None]
